FAERS Safety Report 18562369 (Version 3)
Quarter: 2021Q1

REPORT INFORMATION
  Report Type: Spontaneous
  Country: US (occurrence: US)
  Receive Date: 20201201
  Receipt Date: 20210225
  Transmission Date: 20210419
  Serious: Yes (Other)
  Sender: FDA-Public Use
  Company Number: US-AMGEN-USASP2020193179

PATIENT
  Sex: Female

DRUGS (18)
  1. PREDNISONE. [Concomitant]
     Active Substance: PREDNISONE
     Dosage: UNK
  2. WAL ZYR NOS [Concomitant]
     Active Substance: CETIRIZINE HYDROCHLORIDE OR KETOTIFEN FUMARATE
     Dosage: UNK
  3. COVID?19 VACCINE NOS. [Suspect]
     Active Substance: COVID-19 VACCINE NOS
     Indication: PRODUCT USED FOR UNKNOWN INDICATION
     Route: 065
  4. FEXOFENADINE [Concomitant]
     Active Substance: FEXOFENADINE HYDROCHLORIDE
     Dosage: UNK
  5. ALBUTEROL [SALBUTAMOL] [Concomitant]
     Active Substance: ALBUTEROL
     Dosage: UNK
  6. AMOXICILLIN AND POTASSIUM CLAVULANATE [Concomitant]
     Dosage: UNK
  7. ENBREL [Suspect]
     Active Substance: ETANERCEPT
     Indication: PRODUCT USED FOR UNKNOWN INDICATION
     Dosage: UNK
     Route: 065
  8. THYROID [Concomitant]
     Active Substance: LEVOTHYROXINE\LIOTHYRONINE
     Dosage: UNK
  9. AZELASTINE. [Concomitant]
     Active Substance: AZELASTINE HYDROCHLORIDE
  10. OTEZLA [Suspect]
     Active Substance: APREMILAST
     Indication: PSORIATIC ARTHROPATHY
     Dosage: 30 MILLIGRAM, BID
     Route: 048
     Dates: start: 20160615
  11. FOLIC ACID. [Concomitant]
     Active Substance: FOLIC ACID
  12. BENZONATATE. [Concomitant]
     Active Substance: BENZONATATE
     Dosage: UNK
  13. CYMBALTA [Concomitant]
     Active Substance: DULOXETINE HYDROCHLORIDE
     Dosage: UNK
  14. VITAMINS NOS [Concomitant]
     Active Substance: VITAMINS
     Dosage: UNK
  15. FAMOTIDINE. [Concomitant]
     Active Substance: FAMOTIDINE
  16. FERROUS GLUCEPTATE [Concomitant]
     Active Substance: FERROUS GLUCEPTATE
  17. MONTELUKAST [Concomitant]
     Active Substance: MONTELUKAST SODIUM
  18. PROGESTERONE. [Concomitant]
     Active Substance: PROGESTERONE

REACTIONS (6)
  - Psoriatic arthropathy [Not Recovered/Not Resolved]
  - Asthma [Not Recovered/Not Resolved]
  - Drug hypersensitivity [Unknown]
  - Sinusitis [Not Recovered/Not Resolved]
  - Bronchitis [Not Recovered/Not Resolved]
  - Sensitivity to weather change [Not Recovered/Not Resolved]
